FAERS Safety Report 8154852 (Version 3)
Quarter: 2012Q4

REPORT INFORMATION
  Report Type: 
  Country: US (occurrence: US)
  Receive Date: 20110923
  Receipt Date: 20120921
  Transmission Date: 20130627
  Serious: Yes (Hospitalization, Other)
  Sender: FDA-Public Use
  Company Number: US-ASTRAZENECA-2011SE56215

PATIENT
  Age: 82 Year
  Sex: Female

DRUGS (1)
  1. NEXIUM [Suspect]
     Route: 048

REACTIONS (4)
  - Paralysis [Unknown]
  - Pelvic fracture [Unknown]
  - Malaise [Unknown]
  - Head discomfort [Unknown]
